FAERS Safety Report 6543859 (Version 5)
Quarter: 2013Q2

REPORT INFORMATION
  Report Type: Report from Study
  Country: US (occurrence: US)
  Receive Date: 20080205
  Receipt Date: 20130619
  Transmission Date: 20140414
  Serious: Yes (Hospitalization, Disabling, Other)
  Sender: FDA-Public Use
  Company Number: US-PFIZER INC-2008008642

PATIENT
  Age: 58 Year
  Sex: Female
  Weight: 172 kg

DRUGS (7)
  1. DILANTIN [Suspect]
     Indication: EPILEPSY
     Dosage: 100 MG, 4X/DAY
  2. DILANTIN [Suspect]
     Dosage: UNK
  3. PHENOBARBITAL [Suspect]
     Indication: EPILEPSY
     Dosage: UNK
  4. MEPHENESIN [Suspect]
     Indication: EPILEPSY
     Dosage: UNK
  5. FAMOTIDINE [Concomitant]
  6. ONE-A-DAY [Concomitant]
  7. VALIUM [Concomitant]
     Indication: CONVULSION
     Dosage: 5 MG, 1X/DAY

REACTIONS (17)
  - Hypertension [Recovering/Resolving]
  - Hypersensitivity [Unknown]
  - Osteoporosis [Not Recovered/Not Resolved]
  - Cerebrovascular accident [Not Recovered/Not Resolved]
  - Convulsion [Recovered/Resolved]
  - Speech disorder [Not Recovered/Not Resolved]
  - Product taste abnormal [Not Recovered/Not Resolved]
  - Nausea [Not Recovered/Not Resolved]
  - Weight increased [Not Recovered/Not Resolved]
  - Local swelling [Unknown]
  - Malaise [Unknown]
  - Feeling abnormal [Unknown]
  - Decreased appetite [Unknown]
  - Insomnia [Unknown]
  - Nervousness [Unknown]
  - Headache [Unknown]
  - Tremor [Unknown]
